FAERS Safety Report 7868889-1 (Version None)
Quarter: 2011Q4

REPORT INFORMATION
  Report Type: 
  Country: None (occurrence: None)
  Receive Date: 20111028
  Receipt Date: 20101221
  Transmission Date: 20120403
  Serious: No
  Sender: FDA-Public Use
  Company Number: US-AMGEN-USASP2010010586

PATIENT
  Age: 54 Year
  Sex: Male

DRUGS (2)
  1. ENBREL [Suspect]
     Indication: RHEUMATOID ARTHRITIS
     Dosage: 50 MG, QWK
     Dates: start: 20000701
  2. AZULFIDINE [Concomitant]
     Dosage: UNK
     Dates: start: 20100101

REACTIONS (6)
  - RHEUMATOID ARTHRITIS [None]
  - WHEEZING [None]
  - INFLAMMATION [None]
  - OEDEMA PERIPHERAL [None]
  - DYSPNOEA [None]
  - NASAL DRYNESS [None]
